FAERS Safety Report 5152264-7 (Version None)
Quarter: 2006Q4

REPORT INFORMATION
  Report Type: 
  Country: None (occurrence: None)
  Receive Date: 20061113
  Receipt Date: 20061113
  Transmission Date: 20070319
  Serious: No
  Sender: FDA-Public Use
  Company Number: None

PATIENT
  Age: 82 Year
  Sex: Male
  Weight: 81.1939 kg

DRUGS (1)
  1. LEVAQUIN [Suspect]
     Dosage: 500 MG Q24HOURS IV
     Route: 042
     Dates: start: 20060920

REACTIONS (2)
  - BURNING SENSATION [None]
  - ERYTHEMA [None]
